FAERS Safety Report 5612081-8 (Version None)
Quarter: 2008Q1

REPORT INFORMATION
  Report Type: 
  Country: None (occurrence: None)
  Receive Date: 20080204
  Receipt Date: 20080124
  Transmission Date: 20080703
  Serious: Yes (Other)
  Sender: FDA-Public Use
  Company Number: PHEH2008US00685

PATIENT
  Age: 73 Year
  Sex: Female

DRUGS (6)
  1. DIOVAN [Suspect]
     Indication: HYPERTENSION
     Dosage: 160 MG, UNK
     Route: 065
     Dates: start: 20070801
  2. DIOVAN [Suspect]
     Dosage: 320 MG, UNK
     Route: 065
     Dates: start: 20071201
  3. TEKTURNA [Suspect]
     Dosage: 150 MG, UNK
     Route: 065
     Dates: start: 20070801, end: 20071001
  4. TEKTURNA [Suspect]
     Dosage: 300 MG, UNK
     Route: 065
     Dates: start: 20071001
  5. CATAPRES [Suspect]
     Indication: HYPERTENSION
     Dosage: 0.01 UNK, QD
     Route: 066
  6. CATAPRES [Suspect]
     Dosage: 0.01 UNK, BID
     Route: 065

REACTIONS (5)
  - HEART RATE INCREASED [None]
  - HYPERTENSION [None]
  - HYPOTENSION [None]
  - PAIN IN EXTREMITY [None]
  - VISION BLURRED [None]
